FAERS Safety Report 23942583 (Version 2)
Quarter: 2024Q2

REPORT INFORMATION
  Report Type: Spontaneous
  Country: IE (occurrence: IE)
  Receive Date: 20240605
  Receipt Date: 20240617
  Transmission Date: 20240715
  Serious: Yes (Other)
  Sender: FDA-Public Use
  Company Number: IE-OTSUKA-2024_015349

PATIENT
  Sex: Male

DRUGS (1)
  1. ABILIFY [Suspect]
     Active Substance: ARIPIPRAZOLE
     Indication: Product used for unknown indication
     Dosage: UNK
     Route: 065

REACTIONS (7)
  - Autism spectrum disorder [Unknown]
  - Suicidal ideation [Recovered/Resolved]
  - Attention deficit hyperactivity disorder [Unknown]
  - Amnesia [Recovered/Resolved]
  - Psychomotor hyperactivity [Unknown]
  - Depression [Unknown]
  - Disturbance in attention [Unknown]
